FAERS Safety Report 15889022 (Version 1)
Quarter: 2019Q1

REPORT INFORMATION
  Report Type: Spontaneous
  Country: GB (occurrence: GB)
  Receive Date: 20190130
  Receipt Date: 20190130
  Transmission Date: 20190417
  Serious: Yes (Other)
  Sender: FDA-Public Use
  Company Number: GB-PFIZER INC-2019036911

PATIENT
  Age: 49 Year
  Sex: Male

DRUGS (2)
  1. FEMODENE [Suspect]
     Active Substance: ETHINYL ESTRADIOL\GESTODENE
  2. PREMARIN [Suspect]
     Active Substance: ESTROGENS, CONJUGATED

REACTIONS (2)
  - Systemic scleroderma [Unknown]
  - Rheumatoid arthritis [Unknown]
